FAERS Safety Report 8675445 (Version 2)
Quarter: 2015Q2

REPORT INFORMATION
  Report Type: Report from Study
  Country: US (occurrence: US)
  Receive Date: 20120720
  Receipt Date: 20150629
  Transmission Date: 20150821
  Serious: Yes (Death)
  Sender: FDA-Public Use
  Company Number: US-ROCHE-1088161

PATIENT
  Age: 75 Year
  Sex: Female

DRUGS (5)
  1. LUCENTIS [Suspect]
     Active Substance: RANIBIZUMAB
     Indication: DIABETIC RETINOPATHY
     Dosage: MONTHLY FOR 3 MONTHS THEN QUARTERLY
     Route: 050
     Dates: start: 20080923, end: 20101112
  2. XYLOCAINE [Concomitant]
     Active Substance: LIDOCAINE HYDROCHLORIDE
     Indication: PAIN
  3. AVASTIN [Suspect]
     Active Substance: BEVACIZUMAB
     Indication: PRODUCT USED FOR UNKNOWN INDICATION
     Route: 065
  4. BETADINE [Concomitant]
     Active Substance: POVIDONE-IODINE
  5. LUCENTIS [Suspect]
     Active Substance: RANIBIZUMAB
     Indication: RETINAL OEDEMA

REACTIONS (8)
  - Off label use [Unknown]
  - Death [Fatal]
  - Mydriasis [Unknown]
  - Blood glucose decreased [Unknown]
  - Herpes zoster [Unknown]
  - Blood pressure increased [Unknown]
  - Discomfort [Unknown]
  - Visual impairment [Unknown]

NARRATIVE: CASE EVENT DATE: 20110919
